FAERS Safety Report 15605859 (Version 1)
Quarter: 2018Q4

REPORT INFORMATION
  Report Type: Spontaneous
  Country: US (occurrence: US)
  Receive Date: 20181112
  Receipt Date: 20181112
  Transmission Date: 20190205
  Serious: No
  Sender: FDA-Public Use
  Company Number: US-CURIUM PHARMACEUTICALS-201700346

PATIENT
  Age: 27 Year
  Sex: Male

DRUGS (2)
  1. TECHNESCAN MAG3 [Suspect]
     Active Substance: TECHNETIUM TC-99M TIATIDE
     Indication: RENAL SCAN
     Route: 065
     Dates: start: 20171117, end: 20171117
  2. SODIUM PERTECHNETATE TC 99M [Suspect]
     Active Substance: TECHNETIUM TC-99M SODIUM PERTECHNETATE
     Indication: RENAL SCAN
     Route: 065
     Dates: start: 20171117, end: 20171117

REACTIONS (2)
  - Renal scan abnormal [Not Recovered/Not Resolved]
  - Drug ineffective [Not Recovered/Not Resolved]

NARRATIVE: CASE EVENT DATE: 20171117
